FAERS Safety Report 18736879 (Version 2)
Quarter: 2021Q1

REPORT INFORMATION
  Report Type: Spontaneous
  Country: GB (occurrence: GB)
  Receive Date: 20210113
  Receipt Date: 20210202
  Transmission Date: 20210419
  Serious: Yes (Other)
  Sender: FDA-Public Use
  Company Number: GB-PFIZER INC-2021009185

PATIENT
  Age: 65 Year
  Sex: Male

DRUGS (2)
  1. NEXIUM [Suspect]
     Active Substance: ESOMEPRAZOLE MAGNESIUM
     Dosage: 20 MG, 2X/DAY
     Route: 065
  2. SERTRALINE HCL [Suspect]
     Active Substance: SERTRALINE HYDROCHLORIDE
     Indication: DEPRESSION
     Dosage: (200 MG, DAILY), 200 MG, QD JUST BEFORE BREAKFAST
     Route: 065
     Dates: start: 202011

REACTIONS (3)
  - Dyspepsia [Recovered/Resolved]
  - Dysgeusia [Unknown]
  - Foreign body in throat [Recovered/Resolved]
